FAERS Safety Report 20435780 (Version 2)
Quarter: 2023Q1

REPORT INFORMATION
  Report Type: Spontaneous
  Country: US (occurrence: US)
  Receive Date: 20220207
  Receipt Date: 20230215
  Transmission Date: 20230417
  Serious: No
  Sender: FDA-Public Use
  Company Number: US-APOTEX-2022AP002047

PATIENT
  Sex: Male

DRUGS (6)
  1. TIZANIDINE HYDROCHLORIDE [Suspect]
     Active Substance: TIZANIDINE HYDROCHLORIDE
     Indication: Blood pressure management
     Dosage: 4 MILLIGRAM, TID
     Route: 065
  2. TIZANIDINE HYDROCHLORIDE [Suspect]
     Active Substance: TIZANIDINE HYDROCHLORIDE
     Indication: Muscle spasms
  3. TIZANIDINE [Suspect]
     Active Substance: TIZANIDINE
     Indication: Blood pressure management
     Dosage: 6 MILLIGRAM, TID
     Route: 065
  4. TIZANIDINE [Suspect]
     Active Substance: TIZANIDINE
     Indication: Muscle spasms
  5. TIZANIDINE [Suspect]
     Active Substance: TIZANIDINE
     Indication: Blood pressure management
     Dosage: 8 MILLIGRAM, TID
     Route: 065
  6. TIZANIDINE [Suspect]
     Active Substance: TIZANIDINE
     Indication: Muscle spasms

REACTIONS (4)
  - Product quality issue [Unknown]
  - Product administration error [Unknown]
  - Intentional product use issue [Unknown]
  - Drug ineffective [Unknown]
